FAERS Safety Report 13501511 (Version 1)
Quarter: 2017Q2

REPORT INFORMATION
  Report Type: Spontaneous
  Country: US (occurrence: US)
  Receive Date: 20170501
  Receipt Date: 20170501
  Transmission Date: 20170830
  Serious: Yes (Other)
  Sender: FDA-Public Use
  Company Number: US-CELGENEUS-USA-20170409213

PATIENT
  Sex: Female
  Weight: 68.1 kg

DRUGS (1)
  1. REVLIMID [Suspect]
     Active Substance: LENALIDOMIDE
     Indication: PLASMA CELL MYELOMA
     Dosage: 25 MILLIGRAM
     Route: 048
     Dates: start: 201703

REACTIONS (6)
  - Ear discomfort [Recovered/Resolved]
  - Head discomfort [Recovered/Resolved]
  - Productive cough [Recovered/Resolved]
  - Sinusitis [Recovered/Resolved]
  - Peripheral swelling [Recovered/Resolved]
  - Sneezing [Recovered/Resolved]

NARRATIVE: CASE EVENT DATE: 2017
